FAERS Safety Report 22104162 (Version 2)
Quarter: 2023Q1

REPORT INFORMATION
  Report Type: Report from Study
  Country: CA (occurrence: CA)
  Receive Date: 20230316
  Receipt Date: 20230325
  Transmission Date: 20230417
  Serious: Yes (Hospitalization, Other)
  Sender: FDA-Public Use
  Company Number: CA-ABBVIE-4334893

PATIENT
  Age: 76 Year
  Sex: Male

DRUGS (1)
  1. LUPRON DEPOT [Suspect]
     Active Substance: LEUPROLIDE ACETATE
     Indication: Prostate cancer
     Route: 030

REACTIONS (10)
  - Transurethral prostatectomy [Unknown]
  - Balance disorder [Unknown]
  - Wheelchair user [Unknown]
  - Unevaluable event [Unknown]
  - Mobility decreased [Unknown]
  - Transfusion [Unknown]
  - Hypoacusis [Unknown]
  - Gait inability [Unknown]
  - Transurethral prostatectomy [Unknown]
  - Surgery [Unknown]

NARRATIVE: CASE EVENT DATE: 20230202
